FAERS Safety Report 12638920 (Version 2)
Quarter: 2016Q3

REPORT INFORMATION
  Report Type: Spontaneous
  Country: JP (occurrence: JP)
  Receive Date: 20160809
  Receipt Date: 20160902
  Transmission Date: 20161109
  Serious: Yes (Other)
  Sender: FDA-Public Use
  Company Number: JP-009507513-1608JPN005283

PATIENT
  Sex: Male

DRUGS (2)
  1. ZETIA [Suspect]
     Active Substance: EZETIMIBE
     Dosage: DAILY DOSAGE UNKNOWN
     Route: 048
  2. BAYASPIRIN [Concomitant]
     Active Substance: ASPIRIN
     Dosage: DAILY DOSAGE UNKNOWN. FORMULATION POR
     Route: 048

REACTIONS (1)
  - Renal impairment [Unknown]
